FAERS Safety Report 10189413 (Version 1)
Quarter: 2014Q2

REPORT INFORMATION
  Report Type: Spontaneous
  Country: US (occurrence: US)
  Receive Date: 20140522
  Receipt Date: 20140522
  Transmission Date: 20141212
  Serious: No
  Sender: FDA-Public Use
  Company Number: US-BAYER-2014-060405

PATIENT
  Sex: Female

DRUGS (2)
  1. BETAPACE [Suspect]
  2. BETAPACE AF [Suspect]

REACTIONS (1)
  - Drug dispensing error [None]
